FAERS Safety Report 6094950-0 (Version None)
Quarter: 2009Q1

REPORT INFORMATION
  Report Type: 
  Country: None (occurrence: None)
  Receive Date: 20090227
  Receipt Date: 20090218
  Transmission Date: 20090719
  Serious: Yes (Other)
  Sender: FDA-Public Use
  Company Number: CN-PFIZER INC-2009173443

PATIENT

DRUGS (2)
  1. SOLU-MEDROL [Suspect]
     Indication: NEPHROTIC SYNDROME
     Dates: start: 20081217, end: 20090101
  2. CRESTOR [Interacting]
     Indication: HYPERLIPIDAEMIA
     Route: 048
     Dates: start: 20081217, end: 20081229

REACTIONS (2)
  - DRUG INTERACTION [None]
  - LIVER DISORDER [None]
